FAERS Safety Report 13666968 (Version 1)
Quarter: 2017Q2

REPORT INFORMATION
  Report Type: Spontaneous
  Country: US (occurrence: US)
  Receive Date: 20170619
  Receipt Date: 20170619
  Transmission Date: 20170830
  Serious: No
  Sender: FDA-Public Use
  Company Number: US-ROCHE-1250649

PATIENT
  Sex: Female

DRUGS (1)
  1. XELODA [Suspect]
     Active Substance: CAPECITABINE
     Indication: BREAST CANCER METASTATIC
     Dosage: 2 PILLS IN MORNING AND 2 PILLS AT NIGHT, 2 WEEKS ON AND ONE WEEK OFF
     Route: 048

REACTIONS (6)
  - Cough [Unknown]
  - Nausea [Unknown]
  - Lower respiratory tract congestion [Unknown]
  - Depression [Unknown]
  - Oropharyngeal pain [Unknown]
  - Throat irritation [Unknown]
